FAERS Safety Report 4528281-4 (Version None)
Quarter: 2004Q4

REPORT INFORMATION
  Report Type: 
  Country: None (occurrence: None)
  Receive Date: 20041130
  Receipt Date: 20040803
  Transmission Date: 20050328
  Serious: No
  Sender: FDA-Public Use
  Company Number: WAES 0408USA00317

PATIENT
  Age: 60 Year
  Sex: Female

DRUGS (4)
  1. ZETIA [Suspect]
     Indication: HYPERCHOLESTEROLAEMIA
     Dosage: 10 MG/DAILY/PO
     Route: 048
  2. ALTACE [Concomitant]
  3. LIPITOR [Concomitant]
  4. ASPIRIN [Concomitant]

REACTIONS (2)
  - BLOOD CHOLESTEROL DECREASED [None]
  - UNEXPECTED THERAPEUTIC DRUG EFFECT [None]
